FAERS Safety Report 13635526 (Version 3)
Quarter: 2018Q1

REPORT INFORMATION
  Report Type: Spontaneous
  Country: US (occurrence: US)
  Receive Date: 20170609
  Receipt Date: 20180123
  Transmission Date: 20180508
  Serious: Yes (Hospitalization)
  Sender: FDA-Public Use
  Company Number: US-PFIZER INC-2017254062

PATIENT
  Age: 37 Year
  Sex: Female
  Weight: 81.65 kg

DRUGS (1)
  1. LYRICA [Suspect]
     Active Substance: PREGABALIN
     Dosage: UNK
     Dates: end: 201705

REACTIONS (4)
  - Fibromyalgia [Unknown]
  - Migraine [Unknown]
  - Crying [Unknown]
  - Movement disorder [Unknown]
